FAERS Safety Report 8254784-5 (Version None)
Quarter: 2012Q2

REPORT INFORMATION
  Report Type: 
  Country: None (occurrence: None)
  Receive Date: 20120403
  Receipt Date: 20120327
  Transmission Date: 20120825
  Serious: Yes (Hospitalization, Other)
  Sender: FDA-Public Use
  Company Number: PHHY2012BR005588

PATIENT
  Sex: Female

DRUGS (2)
  1. EXELON [Suspect]
     Dosage: 9.5 MG\24H (18MG/10CM2 )
     Route: 062
  2. EXELON [Suspect]
     Indication: DEMENTIA
     Dosage: 4.6MG\24H (9MG/5CM2 )
     Route: 062

REACTIONS (7)
  - FLUID RETENTION [None]
  - DYSPHAGIA [None]
  - URINE OUTPUT DECREASED [None]
  - DECUBITUS ULCER [None]
  - APHAGIA [None]
  - EATING DISORDER [None]
  - IMPAIRED HEALING [None]
